FAERS Safety Report 4920074-9 (Version None)
Quarter: 2006Q1

REPORT INFORMATION
  Report Type: 
  Country: None (occurrence: None)
  Receive Date: 20060216
  Receipt Date: 20060206
  Transmission Date: 20060701
  Serious: Yes (Death, Hospitalization)
  Sender: FDA-Public Use
  Company Number: 2006S1000032

PATIENT
  Age: 66 Year
  Sex: Male

DRUGS (1)
  1. ACITRETIN [Suspect]
     Indication: PSORIASIS
     Dosage: 25 MG; QD; PO
     Route: 048
     Dates: start: 20050210, end: 20050607

REACTIONS (2)
  - LUNG INFILTRATION [None]
  - RESPIRATORY FAILURE [None]
